FAERS Safety Report 13053328 (Version 2)
Quarter: 2017Q1

REPORT INFORMATION
  Report Type: Other
  Country: DE (occurrence: DE)
  Receive Date: 20161222
  Receipt Date: 20170103
  Transmission Date: 20170428
  Serious: Yes (Hospitalization)
  Sender: FDA-Public Use
  Company Number: DE-SHIRE-DE201619293

PATIENT
  Age: 61 Year
  Sex: Female
  Weight: 52.5 kg

DRUGS (6)
  1. RAMIPRIL. [Concomitant]
     Active Substance: RAMIPRIL
     Indication: PRODUCT USED FOR UNKNOWN INDICATION
     Dosage: UNK, 1X/DAY:QD (1 IN THE MORNING)
     Route: 065
  2. RAMILICH [Concomitant]
     Active Substance: RAMIPRIL
     Indication: PRODUCT USED FOR UNKNOWN INDICATION
     Dosage: UNK, 1X/DAY:QD (1 IN THE MORNING)
     Route: 065
  3. REVESTIVE [Suspect]
     Active Substance: TEDUGLUTIDE
     Indication: SHORT-BOWEL SYNDROME
     Dosage: 0.05 MG/KG/BW, 1X/DAY:QD
     Route: 058
     Dates: start: 20160407
  4. LEVETIRACETAM. [Concomitant]
     Active Substance: LEVETIRACETAM
     Indication: PRODUCT USED FOR UNKNOWN INDICATION
     Dosage: 750 MG, 2X/DAY:BID (1 MORNING AND EVENING)
     Route: 065
  5. COTRIM [Concomitant]
     Active Substance: SULFAMETHOXAZOLE\TRIMETHOPRIM
     Indication: PRODUCT USED FOR UNKNOWN INDICATION
     Dosage: 960 MG, 2X/DAY:BID (1 MORNING AND EVENING)
     Route: 065
     Dates: start: 20161205
  6. MORPHINE [Concomitant]
     Active Substance: MORPHINE
     Indication: PRODUCT USED FOR UNKNOWN INDICATION
     Dosage: 2% DROPS, 4X/DAY:QID (4 MORNING,MIDDAY,EVENING AND NIGHT)
     Route: 065

REACTIONS (6)
  - Hernia [Unknown]
  - Inflammation [Recovering/Resolving]
  - Stoma site pain [Unknown]
  - Weight decreased [Unknown]
  - Renal cyst [Recovering/Resolving]
  - Stoma site induration [Unknown]

NARRATIVE: CASE EVENT DATE: 20161125
